FAERS Safety Report 5356109-1 (Version None)
Quarter: 2007Q2

REPORT INFORMATION
  Report Type: 
  Country: None (occurrence: None)
  Receive Date: 20070613
  Receipt Date: 20070607
  Transmission Date: 20071010
  Serious: Yes (Other)
  Sender: FDA-Public Use
  Company Number: US-PFIZER INC-2007022835

PATIENT
  Age: 85 Year
  Sex: Female

DRUGS (1)
  1. DETROL LA [Suspect]
     Dosage: DAILY DOSE:3MG

REACTIONS (2)
  - SURGERY [None]
  - URINE OUTPUT INCREASED [None]
